FAERS Safety Report 8321004-2 (Version None)
Quarter: 2012Q2

REPORT INFORMATION
  Report Type: 
  Country: None (occurrence: None)
  Receive Date: 20120430
  Receipt Date: 20120425
  Transmission Date: 20120825
  Serious: Yes (Death, Hospitalization)
  Sender: FDA-Public Use
  Company Number: PHHY2012JP015764

PATIENT
  Age: 79 Year
  Sex: Male

DRUGS (3)
  1. COMTAN [Suspect]
     Indication: DRUG EFFECT DECREASED
     Route: 048
  2. LEVODOPA [Concomitant]
     Route: 048
  3. SELEGILINE HYDROCHLORIDE [Concomitant]
     Route: 048

REACTIONS (6)
  - APHAGIA [None]
  - ALTERED STATE OF CONSCIOUSNESS [None]
  - LIVER DISORDER [None]
  - RENAL FAILURE ACUTE [None]
  - LIVER FUNCTION TEST ABNORMAL [None]
  - DEHYDRATION [None]
